FAERS Safety Report 9296746 (Version 1)
Quarter: 2013Q2

REPORT INFORMATION
  Report Type: Spontaneous
  Country: JP (occurrence: JP)
  Receive Date: 20130517
  Receipt Date: 20130517
  Transmission Date: 20140414
  Serious: Yes (Hospitalization)
  Sender: FDA-Public Use
  Company Number: JP-ROXANE LABORATORIES, INC.-2013-RO-00777RO

PATIENT
  Age: 9 Year
  Sex: Male
  Weight: 27 kg

DRUGS (7)
  1. LEVETIRACETAM [Suspect]
     Indication: LENNOX-GASTAUT SYNDROME
     Dosage: 250 MG
  2. LEVETIRACETAM [Suspect]
     Dosage: 500 MG
  3. LEVETIRACETAM [Suspect]
     Dosage: 750 MG
  4. VALPROIC ACID [Suspect]
     Indication: INFANTILE SPASMS
     Dosage: 700 MG
  5. ZONISAMIDE [Suspect]
     Indication: LENNOX-GASTAUT SYNDROME
     Dosage: 200 MG
  6. CLOBAZAM [Suspect]
     Indication: LENNOX-GASTAUT SYNDROME
     Dosage: 6 MG
  7. LAMOTRIGINE [Suspect]
     Indication: LENNOX-GASTAUT SYNDROME
     Dosage: 10 MG

REACTIONS (1)
  - Status epilepticus [Recovered/Resolved]
